FAERS Safety Report 4314947-8 (Version None)
Quarter: 2004Q1

REPORT INFORMATION
  Report Type: 
  Country: None (occurrence: None)
  Receive Date: 20040309
  Receipt Date: 20040224
  Transmission Date: 20041129
  Serious: Yes (Hospitalization, Other)
  Sender: FDA-Public Use
  Company Number: DE_010305318

PATIENT
  Age: 86 Year
  Sex: Female
  Weight: 58 kg

DRUGS (5)
  1. GEMZAR [Suspect]
     Indication: PANCREATIC CARCINOMA
     Dosage: 800 MG/M2/PER INFUSION
     Dates: start: 20010301, end: 20040101
  2. DEXAMETHASONE [Concomitant]
  3. ANTIEMETIC [Concomitant]
  4. HEPARIN [Concomitant]
  5. ERYPO (EPOETIN ALFA) [Concomitant]

REACTIONS (19)
  - ABDOMINAL PAIN UPPER [None]
  - ANAEMIA [None]
  - ASTHENIA [None]
  - C-REACTIVE PROTEIN INCREASED [None]
  - CARBOHYDRATE ANTIGEN 19-9 INCREASED [None]
  - DEEP VEIN THROMBOSIS [None]
  - DUODENAL ULCER HAEMORRHAGE [None]
  - DYSPNOEA [None]
  - EMBOLISM [None]
  - ERYTHEMA [None]
  - HYPERTENSION [None]
  - INFECTION [None]
  - LEUKOPENIA [None]
  - LYMPHOPENIA [None]
  - METASTASES TO LUNG [None]
  - PANCREATITIS [None]
  - PYREXIA [None]
  - THROMBOCYTHAEMIA [None]
  - THROMBOCYTOPENIA [None]
